FAERS Safety Report 12209285 (Version 1)
Quarter: 2016Q1

REPORT INFORMATION
  Report Type: Report from Study
  Country: BR (occurrence: BR)
  Receive Date: 20160324
  Receipt Date: 20160324
  Transmission Date: 20160526
  Serious: Yes (Hospitalization, Other)
  Sender: FDA-Public Use
  Company Number: BR-ABBVIE-16K-020-1587843-00

PATIENT
  Age: 56 Year
  Sex: Female
  Weight: 87 kg

DRUGS (4)
  1. HUMIRA [Suspect]
     Active Substance: ADALIMUMAB
     Indication: RHEUMATOID ARTHRITIS
     Route: 058
     Dates: start: 20141118, end: 201512
  2. CYMBI [Concomitant]
     Indication: OSTEOARTHRITIS
     Route: 048
     Dates: start: 201511
  3. PREDNISONE. [Concomitant]
     Active Substance: PREDNISONE
     Indication: ARTHRALGIA
     Route: 048
     Dates: start: 2009
  4. LANOXIN [Concomitant]
     Active Substance: DIGOXIN
     Indication: OSTEOARTHRITIS
     Route: 048
     Dates: start: 20160315

REACTIONS (8)
  - Post procedural infection [Recovered/Resolved]
  - Pain [Recovering/Resolving]
  - Uterine polyp [Recovered/Resolved]
  - Uterine polyp [Unknown]
  - Musculoskeletal stiffness [Recovering/Resolving]
  - White blood cell count decreased [Unknown]
  - Pain [Recovered/Resolved]
  - Arthralgia [Recovering/Resolving]

NARRATIVE: CASE EVENT DATE: 201508
